FAERS Safety Report 5533300-2 (Version None)
Quarter: 2007Q4

REPORT INFORMATION
  Report Type: 
  Country: None (occurrence: None)
  Receive Date: 20071128
  Receipt Date: 20071114
  Transmission Date: 20080405
  Serious: Yes (Hospitalization, Other)
  Sender: FDA-Public Use
  Company Number: 164260USA

PATIENT
  Age: 54 Year
  Sex: Male

DRUGS (3)
  1. GABAPENTIN [Suspect]
  2. HEPARIN [Suspect]
     Dosage: INTRAVENOUS (NOT OTHERWISE SPECIFIED)
     Route: 042
  3. PREDNISOLONE [Suspect]
     Indication: EYE INFECTION

REACTIONS (4)
  - ANAPHYLACTIC REACTION [None]
  - EYE INFECTION [None]
  - FACIAL PAIN [None]
  - NO THERAPEUTIC RESPONSE [None]
